FAERS Safety Report 24556101 (Version 3)
Quarter: 2024Q4

REPORT INFORMATION
  Report Type: Other
  Country: US (occurrence: US)
  Receive Date: 20241028
  Receipt Date: 20241111
  Transmission Date: 20250115
  Serious: No
  Sender: TRAVERE THERAPEUTICS
  Company Number: US-TRAVERE-2024TVT01006

PATIENT
  Age: 40 Year
  Sex: Female

DRUGS (2)
  1. FILSPARI [Suspect]
     Active Substance: SPARSENTAN
     Indication: IgA nephropathy
     Dosage: 1 TABLET BY MOUTH 1 TIME FOR 1-14
     Route: 048
     Dates: start: 202409, end: 202410
  2. FILSPARI [Suspect]
     Active Substance: SPARSENTAN
     Dosage: 2 TABLETS, ONCE A DAY
     Route: 048
     Dates: start: 202410, end: 202410

REACTIONS (7)
  - Nausea [None]
  - Vomiting [None]
  - Dizziness exertional [Unknown]
  - Fatigue [Unknown]
  - Hypotension [Unknown]
  - Syncope [Unknown]
  - Adverse event [Unknown]
